FAERS Safety Report 22943644 (Version 2)
Quarter: 2023Q4

REPORT INFORMATION
  Report Type: Spontaneous
  Country: DE (occurrence: DE)
  Receive Date: 20230914
  Receipt Date: 20231017
  Transmission Date: 20240110
  Serious: Yes (Death, Other)
  Sender: FDA-Public Use
  Company Number: DE-ALXN-A202311848

PATIENT
  Sex: Male
  Weight: 78 kg

DRUGS (9)
  1. ULTOMIRIS [Suspect]
     Active Substance: RAVULIZUMAB-CWVZ
     Indication: Myasthenic syndrome
     Dosage: 3300 MG, EVERY 8 WEEKS
     Route: 065
     Dates: start: 20230519
  2. ULTOMIRIS [Suspect]
     Active Substance: RAVULIZUMAB-CWVZ
     Indication: Myasthenia gravis
     Dosage: 2700 MG, UNK
     Route: 065
     Dates: start: 20230512
  3. DALFAMPRIDINE [Concomitant]
     Active Substance: DALFAMPRIDINE
     Indication: Product used for unknown indication
     Dosage: 20 MG, QD
     Route: 065
  4. AMOXICILLIN\CLAVULANIC ACID [Concomitant]
     Active Substance: AMOXICILLIN\CLAVULANIC ACID
     Indication: Product used for unknown indication
     Dosage: 500 MG, TID
     Route: 065
     Dates: start: 20230504, end: 20230519
  5. AZATHIOPRINE [Concomitant]
     Active Substance: AZATHIOPRINE
     Indication: Product used for unknown indication
     Dosage: 50 MG, TID
     Route: 065
  6. MESTINON [Concomitant]
     Active Substance: PYRIDOSTIGMINE BROMIDE
     Indication: Product used for unknown indication
     Dosage: 60 MG, TID
     Route: 065
  7. PANTOPRAZOLE [Concomitant]
     Active Substance: PANTOPRAZOLE
     Indication: Product used for unknown indication
     Dosage: 20 MG, QD
     Route: 065
  8. PREDNISOLON                        /00016201/ [Concomitant]
     Indication: Product used for unknown indication
     Dosage: 60 MG, UNK
     Route: 065
     Dates: start: 202304
  9. PYRIDOSTIGMINE RETARD [Concomitant]
     Indication: Product used for unknown indication
     Dosage: 90 MG, QD
     Route: 065

REACTIONS (5)
  - Gastrointestinal ulcer haemorrhage [Fatal]
  - Intestinal perforation [Unknown]
  - Peritonitis [Unknown]
  - Gastrostomy tube site complication [Unknown]
  - Off label use [Unknown]

NARRATIVE: CASE EVENT DATE: 20230603
